FAERS Safety Report 17508964 (Version 2)
Quarter: 2020Q1

REPORT INFORMATION
  Report Type: Report from Study
  Country: PL (occurrence: PL)
  Receive Date: 20200306
  Receipt Date: 20200313
  Transmission Date: 20200409
  Serious: Yes (Hospitalization, Other)
  Sender: FDA-Public Use
  Company Number: PL-ASTELLAS-2020US005848

PATIENT
  Age: 64 Year
  Sex: Female

DRUGS (2)
  1. ASP2215 [Suspect]
     Active Substance: GILTERITINIB
     Indication: ACUTE MYELOID LEUKAEMIA
     Dosage: 120 UNKNOWN UNITS, ONCE DAILY
     Route: 048
     Dates: start: 20191118, end: 20200209
  2. AS3156378 [Suspect]
     Active Substance: AZACITIDINE
     Indication: ACUTE MYELOID LEUKAEMIA
     Route: 058
     Dates: start: 20191118, end: 20200119

REACTIONS (5)
  - Hypoalbuminaemia [Not Recovered/Not Resolved]
  - Pancreatitis [Recovering/Resolving]
  - Soft tissue infection [Recovered/Resolved]
  - Generalised oedema [Not Recovered/Not Resolved]
  - Pneumonia [Recovering/Resolving]

NARRATIVE: CASE EVENT DATE: 20200210
